FAERS Safety Report 5219904-5 (Version None)
Quarter: 2007Q1

REPORT INFORMATION
  Report Type: 
  Country: None (occurrence: None)
  Receive Date: 20061117
  Receipt Date: 20060804
  Transmission Date: 20070707
  Serious: Yes (Other)
  Sender: FDA-Public Use
  Company Number: SPV1-2006-00359

PATIENT

DRUGS (2)
  1. CARBAMAZEPINE [Suspect]
  2. PHENYTOIN [Concomitant]

REACTIONS (2)
  - EOSINOPHILIA [None]
  - HEPATITIS [None]
